FAERS Safety Report 5323489-2 (Version None)
Quarter: 2007Q2

REPORT INFORMATION
  Report Type: 
  Country: None (occurrence: None)
  Receive Date: 20070514
  Receipt Date: 20070511
  Transmission Date: 20071010
  Serious: Yes (Hospitalization)
  Sender: FDA-Public Use
  Company Number: GB-SP-2007-01586

PATIENT
  Age: 66 Year
  Sex: Male

DRUGS (1)
  1. IMMUCYST [Suspect]
     Indication: BLADDER CANCER
     Route: 043
     Dates: start: 20060929, end: 20061013

REACTIONS (3)
  - ORCHITIS [None]
  - TESTICULAR PAIN [None]
  - TESTICULAR SWELLING [None]
